FAERS Safety Report 20508731 (Version 2)
Quarter: 2022Q3

REPORT INFORMATION
  Report Type: Spontaneous
  Country: US (occurrence: US)
  Receive Date: 20220223
  Receipt Date: 20220801
  Transmission Date: 20221027
  Serious: Yes (Other)
  Sender: FDA-Public Use
  Company Number: US-PFIZER INC-202200297153

PATIENT
  Age: 21 Year
  Sex: Female

DRUGS (1)
  1. PREMARIN [Suspect]
     Active Substance: ESTROGENS, CONJUGATED
     Indication: Hysterectomy
     Dosage: 9 MG, DAILY

REACTIONS (4)
  - Shock [Unknown]
  - Anxiety [Unknown]
  - Thinking abnormal [Unknown]
  - Memory impairment [Unknown]
